FAERS Safety Report 6339745-5 (Version None)
Quarter: 2009Q3

REPORT INFORMATION
  Report Type: 
  Country: None (occurrence: None)
  Receive Date: 20090903
  Receipt Date: 20090825
  Transmission Date: 20100115
  Serious: Yes (Hospitalization)
  Sender: FDA-Public Use
  Company Number: US-JNJFOC-20090806035

PATIENT
  Sex: Female
  Weight: 33.38 kg

DRUGS (11)
  1. INFLIXIMAB [Suspect]
     Indication: CROHN'S DISEASE
     Route: 042
  2. MULTI-VITAMINS [Concomitant]
  3. FERROUS SULFATE TAB [Concomitant]
  4. ZINC SULFATE [Concomitant]
  5. ASPIRIN [Concomitant]
  6. HUMIRA [Concomitant]
  7. ANTIBIOTICS [Concomitant]
     Indication: IRRITABLE BOWEL SYNDROME
  8. LEVAQUIN [Concomitant]
  9. TYLENOL W/ CODEINE [Concomitant]
  10. OMEGA 3 FATTY ACID [Concomitant]
  11. ANESTHESIA [Concomitant]

REACTIONS (1)
  - CROHN'S DISEASE [None]
